FAERS Safety Report 12966826 (Version 1)
Quarter: 2016Q4

REPORT INFORMATION
  Report Type: Spontaneous
  Country: FR (occurrence: FR)
  Receive Date: 20161123
  Receipt Date: 20161123
  Transmission Date: 20170207
  Serious: Yes (Hospitalization)
  Sender: FDA-Public Use
  Company Number: FR-ROCHE-1857542

PATIENT
  Age: 84 Year
  Sex: Female

DRUGS (4)
  1. LEVOTHYROX [Concomitant]
     Active Substance: LEVOTHYROXINE
  2. L DOPA [Concomitant]
     Active Substance: LEVODOPA
  3. MABTHERA [Suspect]
     Active Substance: RITUXIMAB
     Indication: CRYOGLOBULINAEMIA
     Route: 041
     Dates: start: 20161013, end: 20161027
  4. MABTHERA [Suspect]
     Active Substance: RITUXIMAB
     Indication: SJOGREN^S SYNDROME

REACTIONS (4)
  - Atrial fibrillation [Recovering/Resolving]
  - Ischaemic stroke [Recovering/Resolving]
  - Off label use [Unknown]
  - Aphasia [Recovering/Resolving]

NARRATIVE: CASE EVENT DATE: 20161031
